FAERS Safety Report 6553556-7 (Version None)
Quarter: 2010Q1

REPORT INFORMATION
  Report Type: 
  Country: None (occurrence: None)
  Receive Date: 20100127
  Receipt Date: 20100114
  Transmission Date: 20100710
  Serious: Yes (Other)
  Sender: FDA-Public Use
  Company Number: TW-ROCHE-681335

PATIENT
  Age: 55 Year
  Sex: Female

DRUGS (3)
  1. TRETINOIN [Suspect]
     Route: 065
  2. ARA-C [Concomitant]
  3. DAUNORUBICIN HCL [Concomitant]

REACTIONS (3)
  - PULMONARY HAEMORRHAGE [None]
  - RESPIRATORY FAILURE [None]
  - RETINOIC ACID SYNDROME [None]
